FAERS Safety Report 18793904 (Version 1)
Quarter: 2021Q1

REPORT INFORMATION
  Report Type: Spontaneous
  Country: DE (occurrence: DE)
  Receive Date: 20210127
  Receipt Date: 20210127
  Transmission Date: 20210419
  Serious: Yes (Congenital Anomaly)
  Sender: FDA-Public Use
  Company Number: DE-TEVA-2021-DE-1871342

PATIENT
  Sex: Female

DRUGS (4)
  1. UTROGEST [Concomitant]
     Active Substance: PROGESTERONE
     Indication: HAEMORRHAGE IN PREGNANCY
     Dosage: 200 MILLIGRAM DAILY; 200 [MG/D (100?0?100) ]
     Route: 064
     Dates: start: 20190730, end: 20190801
  2. ESCITALOPRAM [Suspect]
     Active Substance: ESCITALOPRAM OXALATE
     Indication: TENSION HEADACHE
     Dosage: 5 [MG/D ]
     Route: 064
     Dates: start: 20190615, end: 20190716
  3. GABAPENTIN. [Suspect]
     Active Substance: GABAPENTIN
     Indication: TENSION HEADACHE
     Dosage: 900 [MG/D (300?0?600 MG) ]
     Route: 064
     Dates: start: 20190615, end: 20190716
  4. EUTHYROX [Concomitant]
     Active Substance: LEVOTHYROXINE SODIUM
     Indication: THYROID HORMONE REPLACEMENT THERAPY
     Dosage: 150 [UG/D (BIS 112 UG/D) ]
     Route: 064
     Dates: start: 20190615, end: 20190910

REACTIONS (4)
  - Subdural hygroma [Unknown]
  - Congenital absence of vertebra [Unknown]
  - Foetal exposure during pregnancy [Unknown]
  - Gastroschisis [Unknown]
